FAERS Safety Report 10255371 (Version 1)
Quarter: 2014Q2

REPORT INFORMATION
  Report Type: Spontaneous
  Country: US (occurrence: US)
  Receive Date: 20140624
  Receipt Date: 20140624
  Transmission Date: 20141212
  Serious: No
  Sender: FDA-Public Use
  Company Number: US-PFIZER INC-2014169725

PATIENT
  Sex: Male

DRUGS (5)
  1. METFORMIN HCL [Suspect]
     Dosage: UNK
  2. METFORMIN HCL [Suspect]
     Dosage: TAKING HALF THE PILLS
  3. GLIPIZIDE [Suspect]
     Dosage: UNK
  4. GLIPIZIDE [Suspect]
     Dosage: TAKING HALF THE PILLS
  5. VICTOZA [Suspect]
     Dosage: 1.2 MG, UNK

REACTIONS (4)
  - Intentional product misuse [Unknown]
  - Blood glucose increased [Unknown]
  - Diarrhoea [Unknown]
  - Abdominal discomfort [Unknown]
